FAERS Safety Report 13757060 (Version 2)
Quarter: 2017Q3

REPORT INFORMATION
  Report Type: Report from Study
  Country: None (occurrence: CO)
  Receive Date: 20170715
  Receipt Date: 20170720
  Transmission Date: 20171127
  Serious: Yes (Other)
  Sender: FDA-Public Use
  Company Number: CO-ABBVIE-17K-036-2040123-00

PATIENT
  Age: 47 Year
  Sex: Male
  Weight: 71 kg

DRUGS (1)
  1. HUMIRA [Suspect]
     Active Substance: ADALIMUMAB
     Indication: PSORIASIS
     Route: 058
     Dates: start: 20150609, end: 20170627

REACTIONS (3)
  - Limb injury [Not Recovered/Not Resolved]
  - Accident [Not Recovered/Not Resolved]
  - Tuberculin test positive [Unknown]

NARRATIVE: CASE EVENT DATE: 201506
